FAERS Safety Report 6688413-9 (Version None)
Quarter: 2010Q2

REPORT INFORMATION
  Report Type: 
  Country: None (occurrence: None)
  Receive Date: 20100413
  Receipt Date: 20100407
  Transmission Date: 20101027
  Serious: Yes (Hospitalization)
  Sender: FDA-Public Use
  Company Number: WAES 1004USA00652

PATIENT
  Age: 66 Year
  Sex: Male
  Weight: 68.9467 kg

DRUGS (6)
  1. ISENTRESS [Suspect]
     Indication: HIV INFECTION
     Dosage: 400 MG/BID/PO
     Route: 048
     Dates: start: 20090603
  2. BLINDED THERAPY  (PLACEBO) [Suspect]
     Indication: HIV INFECTION
     Dosage: PO
     Route: 048
     Dates: start: 20080607, end: 20090602
  3. DARUNAVIR [Suspect]
     Indication: HIV INFECTION
     Dosage: 300 MG/BID/PO
     Route: 048
     Dates: start: 20060607
  4. RITONAVIR [Suspect]
     Indication: HIV INFECTION
     Dosage: 100 MG/BID/PO
     Route: 048
     Dates: start: 20060607
  5. ETRAVIRINE [Suspect]
     Indication: HIV INFECTION
     Dosage: 100 MG/BID/PO
     Route: 048
     Dates: start: 20060326
  6. ABACAVIR SULFATE/LAMIVUDINE [Suspect]
     Indication: HIV INFECTION
     Dosage: /DAILY/PO
     Route: 048
     Dates: start: 20091119

REACTIONS (3)
  - ATELECTASIS [None]
  - PLEURAL EFFUSION [None]
  - PNEUMONIA [None]
